FAERS Safety Report 16749621 (Version 6)
Quarter: 2022Q3

REPORT INFORMATION
  Report Type: Report from Study
  Country: KR (occurrence: KR)
  Receive Date: 20190828
  Receipt Date: 20220801
  Transmission Date: 20221027
  Serious: Yes (Death, Hospitalization, Other)
  Sender: FDA-Public Use
  Company Number: KR-ASTELLAS-2019US016149

PATIENT
  Age: 56 Year
  Sex: Female
  Weight: 47 kg

DRUGS (4)
  1. TACROLIMUS [Suspect]
     Active Substance: TACROLIMUS
     Indication: Renal transplant
     Route: 048
     Dates: start: 20180811
  2. CELLCEPT [Concomitant]
     Active Substance: MYCOPHENOLATE MOFETIL
     Indication: Immunosuppression
     Dosage: 1000 (UNKNOWN UNITS), ONCE DAILY (TOTAL DAILY DOSE)
     Route: 065
     Dates: start: 20090430
  3. GEMCITABINE [Concomitant]
     Active Substance: GEMCITABINE
     Indication: Pancreatic carcinoma
     Dosage: 1380 (UNKNOWN UNITS), ONCE DAILY (TOTAL DAILY DOSE)
     Route: 065
     Dates: start: 20180813
  4. PACLITAXEL [Concomitant]
     Active Substance: PACLITAXEL
     Indication: Pancreatic carcinoma
     Dosage: 173 (UNKNOWN UNITS), ONCE DAILY ONCE DAILY (TOTAL DAILY DOSE)
     Route: 065
     Dates: start: 20180813

REACTIONS (3)
  - Asthenia [Fatal]
  - Hyperglycaemic hyperosmolar nonketotic syndrome [Not Recovered/Not Resolved]
  - Pyrexia [Recovered/Resolved]

NARRATIVE: CASE EVENT DATE: 20190321
